FAERS Safety Report 17262562 (Version 4)
Quarter: 2020Q3

REPORT INFORMATION
  Report Type: Spontaneous
  Country: US (occurrence: US)
  Receive Date: 20200113
  Receipt Date: 20200716
  Transmission Date: 20201102
  Serious: No
  Sender: FDA-Public Use
  Company Number: US-PFIZER INC-2020013129

PATIENT
  Age: 49 Year
  Sex: Female

DRUGS (2)
  1. XELJANZ XR [Suspect]
     Active Substance: TOFACITINIB CITRATE
     Indication: RHEUMATOID ARTHRITIS
     Dosage: 11 MG, 1X/DAY
     Route: 048
     Dates: start: 20200106
  2. PREDNISONE. [Concomitant]
     Active Substance: PREDNISONE
     Dosage: UNK

REACTIONS (11)
  - Joint instability [Unknown]
  - Mobility decreased [Recovered/Resolved]
  - Productive cough [Unknown]
  - Product dose omission issue [Unknown]
  - Headache [Unknown]
  - Depression [Unknown]
  - Knee deformity [Unknown]
  - Condition aggravated [Unknown]
  - Fatigue [Recovered/Resolved]
  - Joint swelling [Recovering/Resolving]
  - Gait disturbance [Unknown]

NARRATIVE: CASE EVENT DATE: 2020
